FAERS Safety Report 5658867-5 (Version None)
Quarter: 2008Q1

REPORT INFORMATION
  Report Type: 
  Country: None (occurrence: None)
  Receive Date: 20080310
  Receipt Date: 20070726
  Transmission Date: 20080703
  Serious: No
  Sender: FDA-Public Use
  Company Number: US-BAYER-200711287BCC

PATIENT
  Sex: Female
  Weight: 66 kg

DRUGS (10)
  1. ALEVE [Suspect]
     Indication: NEURALGIA
     Dosage: TOTAL DAILY DOSE: 220 MG  UNIT DOSE: 220 MG
     Route: 048
     Dates: start: 20060101
  2. IBUPROFEN [Suspect]
     Indication: NEURALGIA
     Route: 048
     Dates: start: 20060101
  3. XANAX [Concomitant]
  4. DARVOCET [Concomitant]
  5. CALCIUM [Concomitant]
  6. NATURAL SUPPLEMENTS [Concomitant]
  7. TRAZODONE HCL [Concomitant]
  8. NEURONTIN [Concomitant]
  9. MELATONE [Concomitant]
  10. LYRICA [Concomitant]

REACTIONS (2)
  - DEPRESSION [None]
  - FEELING ABNORMAL [None]
